FAERS Safety Report 9386080 (Version 3)
Quarter: 2013Q3

REPORT INFORMATION
  Report Type: Spontaneous
  Country: JP (occurrence: JP)
  Receive Date: 20130706
  Receipt Date: 20130805
  Transmission Date: 20140515
  Serious: Yes (Hospitalization)
  Sender: FDA-Public Use
  Company Number: JP-B.I. PHARMACEUTICALS,INC./RIDGEFIELD-2013-BI-18875NB

PATIENT
  Age: 74 Year
  Sex: Male

DRUGS (5)
  1. SPIRIVA [Suspect]
     Indication: CHRONIC OBSTRUCTIVE PULMONARY DISEASE
     Dosage: 5 MCG
     Route: 055
     Dates: start: 20130330, end: 20130628
  2. XALATAN [Concomitant]
     Indication: ANGLE CLOSURE GLAUCOMA
     Route: 065
  3. ADOAIR [Concomitant]
     Route: 055
     Dates: start: 20130330
  4. KIPRES [Concomitant]
     Dosage: 10 MG
     Route: 048
  5. SLO_BID [Concomitant]
     Route: 048

REACTIONS (3)
  - Chronic obstructive pulmonary disease [Recovered/Resolved]
  - Cough [Recovered/Resolved]
  - Off label use [Unknown]
